FAERS Safety Report 25950266 (Version 1)
Quarter: 2025Q4

REPORT INFORMATION
  Report Type: Report from Study
  Country: IL (occurrence: IL)
  Receive Date: 20251022
  Receipt Date: 20251022
  Transmission Date: 20260118
  Serious: Yes (Death)
  Sender: ABBVIE
  Company Number: IL-ABBVIE-6512788

PATIENT
  Age: 78 Year
  Sex: Female

DRUGS (2)
  1. CARBIDOPA\LEVODOPA [Suspect]
     Active Substance: CARBIDOPA\LEVODOPA
     Indication: Parkinson^s disease
     Route: 050
     Dates: start: 20220426
  2. CARBIDOPA\LEVODOPA [Suspect]
     Active Substance: CARBIDOPA\LEVODOPA
     Dosage: MORNING DOSAGE(ML)- 2.5 ML, ADDITIONAL TUBE FILING (ML)- 3.0ML, CONTINUOUS ?DOSAGE (ML/H)- 2.3ML/...
     Route: 050
     Dates: start: 20250416, end: 20250416

REACTIONS (1)
  - Coronavirus infection [Fatal]
